FAERS Safety Report 5833355-1 (Version None)
Quarter: 2008Q3

REPORT INFORMATION
  Report Type: 
  Country: None (occurrence: None)
  Receive Date: 20080805
  Receipt Date: 20080724
  Transmission Date: 20090109
  Serious: Yes (Other)
  Sender: FDA-Public Use
  Company Number: CO-ELI_LILLY_AND_COMPANY-CO200807005340

PATIENT
  Age: 66 Year
  Sex: Female

DRUGS (4)
  1. FORTEO [Suspect]
     Dosage: UNK, UNKNOWN
     Route: 058
     Dates: start: 20070118
  2. HUMIRA [Concomitant]
     Dosage: UNK, UNKNOWN
     Route: 065
  3. CALTRATE [Concomitant]
     Dosage: UNK, UNKNOWN
     Route: 065
  4. CALCITRIOL [Concomitant]
     Dosage: UNK, UNKNOWN
     Route: 065

REACTIONS (2)
  - BONE NEOPLASM MALIGNANT [None]
  - MULTIPLE MYELOMA [None]
